FAERS Safety Report 24722416 (Version 1)
Quarter: 2024Q4

REPORT INFORMATION
  Report Type: Spontaneous
  Country: AU (occurrence: None)
  Receive Date: 20241211
  Receipt Date: 20241211
  Transmission Date: 20250115
  Serious: Yes (Other)
  Sender: MDD OPERATIONS
  Company Number: AU-MDD US Operations-MDD202412-004573

PATIENT
  Age: 81 Year
  Sex: Male

DRUGS (1)
  1. APOMORPHINE HYDROCHLORIDE [Suspect]
     Active Substance: APOMORPHINE HYDROCHLORIDE
     Indication: Product used for unknown indication
     Dosage: 50MG/10ML
     Route: 058

REACTIONS (7)
  - Dysphagia [Unknown]
  - Malaise [Unknown]
  - Pollakiuria [Unknown]
  - Faecaloma [Unknown]
  - Dyspnoea [Unknown]
  - Constipation [Unknown]
  - Fatigue [Unknown]
